FAERS Safety Report 5698453-4 (Version None)
Quarter: 2008Q2

REPORT INFORMATION
  Report Type: 
  Country: None (occurrence: None)
  Receive Date: 20080408
  Receipt Date: 20061013
  Transmission Date: 20081010
  Serious: No
  Sender: FDA-Public Use
  Company Number: US-BAYER-US-2006-013786

PATIENT
  Age: 52 Year
  Sex: Female
  Weight: 77 kg

DRUGS (4)
  1. CLIMARA [Suspect]
     Indication: HORMONE REPLACEMENT THERAPY
     Route: 062
  2. INTAL [Concomitant]
     Indication: ASTHMA
  3. SYNTHROID [Concomitant]
     Indication: BASEDOW'S DISEASE
  4. FLEXERIL [Concomitant]
     Indication: FIBROMYALGIA

REACTIONS (1)
  - HEPATIC ENZYME INCREASED [None]
